FAERS Safety Report 8764442 (Version 4)
Quarter: 2013Q3

REPORT INFORMATION
  Report Type: Spontaneous
  Country: US (occurrence: US)
  Receive Date: 20120831
  Receipt Date: 20130717
  Transmission Date: 20140515
  Serious: No
  Sender: FDA-Public Use
  Company Number: US-PFIZER INC-2012210270

PATIENT
  Age: 52 Year
  Sex: Male

DRUGS (1)
  1. VIAGRA [Suspect]
     Indication: LOCAL SWELLING
     Dosage: 100 MG, 1X/DAY

REACTIONS (3)
  - Off label use [Unknown]
  - Local swelling [Not Recovered/Not Resolved]
  - Nasopharyngitis [Unknown]
